FAERS Safety Report 22139865 (Version 1)
Quarter: 2023Q1

REPORT INFORMATION
  Report Type: Spontaneous
  Country: US (occurrence: US)
  Receive Date: 20230327
  Receipt Date: 20230327
  Transmission Date: 20230418
  Serious: No
  Sender: FDA-Public Use
  Company Number: US-JNJFOC-20230327865

PATIENT
  Age: 77 Year
  Sex: Male
  Weight: 87.35 kg

DRUGS (4)
  1. ZYRTEC [Suspect]
     Active Substance: CETIRIZINE HYDROCHLORIDE
     Indication: Product used for unknown indication
     Route: 065
  2. CABOMETYX [Concomitant]
     Active Substance: CABOZANTINIB S-MALATE
     Indication: Renal cancer
     Route: 048
     Dates: start: 20230117, end: 20230207
  3. CABOMETYX [Concomitant]
     Active Substance: CABOZANTINIB S-MALATE
     Route: 048
     Dates: start: 20230214, end: 20230224
  4. INLYTA [Concomitant]
     Active Substance: AXITINIB
     Indication: Renal cancer
     Route: 065

REACTIONS (1)
  - Diarrhoea [Unknown]
